FAERS Safety Report 7822629-0 (Version None)
Quarter: 2011Q4

REPORT INFORMATION
  Report Type: 
  Country: None (occurrence: None)
  Receive Date: 20111018
  Receipt Date: 20111003
  Transmission Date: 20120403
  Serious: Yes (Other)
  Sender: FDA-Public Use
  Company Number: IN-WATSON-2011-16550

PATIENT
  Age: 10 Year
  Sex: Male

DRUGS (1)
  1. VALPROATE SODIUM [Suspect]
     Indication: LENNOX-GASTAUT SYNDROME
     Dosage: 20 TO 60  MG/KG/DAY

REACTIONS (4)
  - HYPERAMMONAEMIC ENCEPHALOPATHY [None]
  - TOXICITY TO VARIOUS AGENTS [None]
  - CONVULSION [None]
  - CEREBELLAR ATROPHY [None]
